FAERS Safety Report 9626934 (Version 1)
Quarter: 2013Q4

REPORT INFORMATION
  Report Type: Spontaneous
  Country: FR (occurrence: FR)
  Receive Date: 20131016
  Receipt Date: 20131016
  Transmission Date: 20140711
  Serious: Yes (Other)
  Sender: FDA-Public Use
  Company Number: FR-BAYER-2013-122475

PATIENT
  Age: 68 Year
  Sex: Male

DRUGS (1)
  1. GLUCOR [Suspect]
     Route: 048

REACTIONS (1)
  - Pneumoperitoneum [None]
